FAERS Safety Report 19113295 (Version 1)
Quarter: 2021Q2

REPORT INFORMATION
  Report Type: Spontaneous
  Country: US (occurrence: US)
  Receive Date: 20210409
  Receipt Date: 20210409
  Transmission Date: 20210717
  Serious: Yes (Other)
  Sender: FDA-Public Use
  Company Number: US-STRIDES ARCOLAB LIMITED-2021SP001491

PATIENT
  Age: 67 Year
  Sex: Male

DRUGS (4)
  1. KETOCONAZOLE. [Suspect]
     Active Substance: KETOCONAZOLE
     Dosage: 600 MILLIGRAM, QD
     Route: 048
     Dates: start: 201804
  2. KETOCONAZOLE. [Suspect]
     Active Substance: KETOCONAZOLE
     Indication: CUTANEOUS LEISHMANIASIS
     Dosage: 600 MILLIGRAM, QD
     Route: 048
     Dates: start: 201711
  3. MILTEFOSINE [Suspect]
     Active Substance: MILTEFOSINE
     Indication: CUTANEOUS LEISHMANIASIS
     Dosage: 150 MILLIGRAM, QD
     Route: 048
     Dates: start: 201706
  4. MILTEFOSINE [Suspect]
     Active Substance: MILTEFOSINE
     Dosage: 150 MILLIGRAM, QD
     Route: 048
     Dates: start: 201804

REACTIONS (1)
  - Drug ineffective for unapproved indication [Unknown]
